FAERS Safety Report 8513577-1 (Version None)
Quarter: 2012Q3

REPORT INFORMATION
  Report Type: 
  Country: None (occurrence: None)
  Receive Date: 20120717
  Receipt Date: 20120710
  Transmission Date: 20120928
  Serious: No
  Sender: FDA-Public Use
  Company Number: US-PFIZER INC-2012142847

PATIENT
  Sex: Female
  Weight: 78.005 kg

DRUGS (2)
  1. EFFEXOR XR [Suspect]
     Indication: ANXIETY
     Dosage: 75 MG, DAILY
  2. EFFEXOR XR [Suspect]
     Indication: INSOMNIA

REACTIONS (3)
  - DRUG WITHDRAWAL SYNDROME [None]
  - HYPOAESTHESIA [None]
  - PARAESTHESIA [None]
